FAERS Safety Report 24275812 (Version 2)
Quarter: 2024Q3

REPORT INFORMATION
  Report Type: Spontaneous
  Country: MX (occurrence: MX)
  Receive Date: 20240903
  Receipt Date: 20240918
  Transmission Date: 20241016
  Serious: Yes (Other)
  Sender: CHEPLAPHARM
  Company Number: MX-ELI_LILLY_AND_COMPANY-MX202408002691

PATIENT
  Age: 52 Year
  Sex: Female
  Weight: 101.4 kg

DRUGS (3)
  1. OLANZAPINE [Suspect]
     Active Substance: OLANZAPINE
     Indication: Schizophrenia
     Dosage: DAILY DOSE: 10 MILLIGRAM
     Route: 048
     Dates: start: 1989
  2. CLONAZEPAM [Suspect]
     Active Substance: CLONAZEPAM
     Indication: Product used for unknown indication
  3. PROZAC [Suspect]
     Active Substance: FLUOXETINE HYDROCHLORIDE
     Indication: Depression
     Dosage: 20 MG, TID?DAILY DOSE: 60 MILLIGRAM
     Route: 048
     Dates: start: 2004

REACTIONS (9)
  - Diabetes mellitus [Unknown]
  - Visual impairment [Unknown]
  - Hypotension [Unknown]
  - Angiopathy [Unknown]
  - Inflammation [Unknown]
  - Pain [Unknown]
  - Arthralgia [Unknown]
  - Weight increased [Unknown]
  - Gait inability [Unknown]

NARRATIVE: CASE EVENT DATE: 20090101
